FAERS Safety Report 17082905 (Version 2)
Quarter: 2020Q1

REPORT INFORMATION
  Report Type: Report from Study
  Country: BR (occurrence: BR)
  Receive Date: 20191127
  Receipt Date: 20200109
  Transmission Date: 20200409
  Serious: Yes (Hospitalization)
  Sender: FDA-Public Use
  Company Number: PHHY2019BR143625

PATIENT
  Age: 45 Year
  Sex: Male

DRUGS (7)
  1. ENTRESTO [Suspect]
     Active Substance: SACUBITRIL\VALSARTAN
     Dosage: 200 MG (97 MG SACUBITRIL/103 MG VALSARTAN), UNK
     Route: 065
     Dates: start: 20190806
  2. FUROSEMIDE. [Concomitant]
     Active Substance: FUROSEMIDE
     Indication: PRODUCT USED FOR UNKNOWN INDICATION
     Dosage: UNK
     Route: 065
  3. ENTRESTO [Suspect]
     Active Substance: SACUBITRIL\VALSARTAN
     Dosage: 100 MG (49 MG SACUBITRIL/51 MG VALSARTAN), BID
     Route: 065
     Dates: start: 20190612
  4. VERAPAMIL [Suspect]
     Active Substance: VERAPAMIL HYDROCHLORIDE
     Indication: PRODUCT USED FOR UNKNOWN INDICATION
     Route: 065
  5. SPIRONOLACTONE. [Suspect]
     Active Substance: SPIRONOLACTONE
     Indication: PRODUCT USED FOR UNKNOWN INDICATION
     Route: 065
  6. ENTRESTO [Suspect]
     Active Substance: SACUBITRIL\VALSARTAN
     Indication: CARDIAC FAILURE
     Dosage: 100 MG (49 MG SACUBITRIL/51 MG VALSARTAN), BID
     Route: 065
  7. CARVEDILOL. [Suspect]
     Active Substance: CARVEDILOL
     Indication: PRODUCT USED FOR UNKNOWN INDICATION
     Dosage: UNK (STARTED APPROXIMATELY ONE WEEK AGO)
     Route: 065

REACTIONS (18)
  - Liver disorder [Unknown]
  - Dyspnoea [Recovered/Resolved]
  - Hypotension [Recovered/Resolved]
  - Dyspnoea [Not Recovered/Not Resolved]
  - Blood pressure decreased [Unknown]
  - Fatigue [Unknown]
  - Feeling abnormal [Unknown]
  - Presyncope [Recovered/Resolved]
  - Insomnia [Recovered/Resolved]
  - Weight increased [Unknown]
  - Fluid retention [Unknown]
  - Asthenia [Unknown]
  - Malaise [Unknown]
  - Vision blurred [Recovered/Resolved]
  - Visual impairment [Recovered/Resolved]
  - Sluggishness [Unknown]
  - Dizziness [Recovered/Resolved]
  - Drug ineffective [Unknown]

NARRATIVE: CASE EVENT DATE: 20190808
